FAERS Safety Report 11990111 (Version 2)
Quarter: 2016Q1

REPORT INFORMATION
  Report Type: Spontaneous
  Country: CZ (occurrence: CZ)
  Receive Date: 20160202
  Receipt Date: 20160209
  Transmission Date: 20160526
  Serious: Yes (Hospitalization)
  Sender: FDA-Public Use
  Company Number: CZ-SYNTHON BV-NL01PV16_40449

PATIENT
  Sex: Female

DRUGS (5)
  1. ZOLPIDEM [Suspect]
     Active Substance: ZOLPIDEM\ZOLPIDEM TARTRATE
     Dosage: 1 DF, AT NIGHT
  2. ZOLPIDEM [Suspect]
     Active Substance: ZOLPIDEM\ZOLPIDEM TARTRATE
     Indication: GENERALISED ANXIETY DISORDER
     Dosage: 10 DF, QD
  3. TRAZODONE [Concomitant]
     Active Substance: TRAZODONE HYDROCHLORIDE
     Dosage: 150 MG, QD
  4. PAROXETINE [Suspect]
     Active Substance: PAROXETINE\PAROXETINE HYDROCHLORIDE
     Dosage: 20 MG, QD
     Route: 065
  5. VALPROATE [Suspect]
     Active Substance: VALPROATE SODIUM
     Dosage: 500 MG, QD

REACTIONS (3)
  - Drug abuse [Unknown]
  - Drug ineffective [Unknown]
  - Drug dependence [Unknown]
